FAERS Safety Report 12394951 (Version 3)
Quarter: 2016Q4

REPORT INFORMATION
  Report Type: Spontaneous
  Country: US (occurrence: US)
  Receive Date: 20160523
  Receipt Date: 20161122
  Transmission Date: 20170207
  Serious: No
  Sender: FDA-Public Use
  Company Number: US-ALLERGAN-1653716US

PATIENT
  Sex: Female

DRUGS (1)
  1. KYBELLA [Suspect]
     Active Substance: DEOXYCHOLIC ACID
     Indication: FAT TISSUE INCREASED
     Dosage: 3 ML, SINGLE
     Route: 058
     Dates: start: 20160323, end: 20160323

REACTIONS (5)
  - Injection site necrosis [Unknown]
  - Wrong technique in product usage process [Unknown]
  - Pallor [Unknown]
  - Skin ulcer [Not Recovered/Not Resolved]
  - Injection site bruising [Unknown]
